APPROVED DRUG PRODUCT: VERAPAMIL HYDROCHLORIDE
Active Ingredient: VERAPAMIL HYDROCHLORIDE
Strength: 180MG
Dosage Form/Route: CAPSULE, EXTENDED RELEASE;ORAL
Application: A075138 | Product #002 | TE Code: AB
Applicant: MYLAN PHARMACEUTICALS INC
Approved: Apr 20, 1999 | RLD: No | RS: No | Type: RX